FAERS Safety Report 4291892-8 (Version None)
Quarter: 2004Q1

REPORT INFORMATION
  Report Type: 
  Country: None (occurrence: None)
  Receive Date: 20040211
  Receipt Date: 20000104
  Transmission Date: 20041129
  Serious: No
  Sender: FDA-Public Use
  Company Number: US-GLAXOSMITHKLINE-A0108645A

PATIENT
  Age: 44 Year
  Sex: Male

DRUGS (13)
  1. LAMICTAL [Suspect]
     Indication: BIPOLAR DISORDER
     Dosage: 25MG PER DAY
     Route: 048
     Dates: start: 19991101, end: 19991220
  2. LAMICTAL [Suspect]
     Dosage: 150MG PER DAY
     Route: 048
     Dates: start: 20030501
  3. METHADONE HCL [Concomitant]
     Indication: PAIN
  4. INSULIN [Concomitant]
     Route: 042
  5. MELLARIL [Concomitant]
  6. DIAZEPAM [Concomitant]
     Dosage: 5MG THREE TIMES PER DAY
  7. IBUPROFEN [Concomitant]
     Dosage: 600MG THREE TIMES PER DAY
  8. LIPITOR [Concomitant]
  9. SYNTHROID [Concomitant]
  10. ACTOS [Concomitant]
  11. KLONOPIN [Concomitant]
  12. VOLTAREN [Concomitant]
  13. ACTOS [Concomitant]

REACTIONS (6)
  - COORDINATION ABNORMAL [None]
  - DIZZINESS [None]
  - FEELING DRUNK [None]
  - HEADACHE [None]
  - INSOMNIA [None]
  - SLEEP DISORDER [None]
